FAERS Safety Report 13728422 (Version 2)
Quarter: 2017Q3

REPORT INFORMATION
  Report Type: Spontaneous
  Country: IT (occurrence: IT)
  Receive Date: 20170707
  Receipt Date: 20170728
  Transmission Date: 20171127
  Serious: Yes (Hospitalization)
  Sender: FDA-Public Use
  Company Number: IT-009507513-1706ITA010908

PATIENT
  Age: 51 Year
  Sex: Male

DRUGS (3)
  1. RIBAVIRIN. [Suspect]
     Active Substance: RIBAVIRIN
     Indication: HEPATIC CIRRHOSIS
     Dosage: 1000 MG DAILY
     Route: 048
     Dates: start: 20170530, end: 20170610
  2. VIEKIRAX [Suspect]
     Active Substance: OMBITASVIR\PARITAPREVIR\RITONAVIR
     Indication: HEPATIC CIRRHOSIS
     Dosage: STRENGTH 12.5 MG/ 75 MG/ 50 MG, 2 DOSE (UNIT), DAILY
     Route: 048
     Dates: start: 20170530, end: 20170613
  3. MK-0000 [Suspect]
     Active Substance: INVESTIGATIONAL PRODUCT

REACTIONS (2)
  - Hepatic failure [Recovering/Resolving]
  - Blood bilirubin increased [Recovering/Resolving]

NARRATIVE: CASE EVENT DATE: 20170602
